FAERS Safety Report 6338378-4 (Version None)
Quarter: 2009Q3

REPORT INFORMATION
  Report Type: 
  Country: None (occurrence: None)
  Receive Date: 20090902
  Receipt Date: 20090827
  Transmission Date: 20100115
  Serious: Yes (Life-Threatening, Hospitalization, Disabling, Other)
  Sender: FDA-Public Use
  Company Number: US-PFIZER INC-2009260304

PATIENT
  Sex: Female
  Weight: 72.562 kg

DRUGS (8)
  1. PF-04383119 [Suspect]
     Dosage: 5 MG, 2X/DAY
     Route: 048
     Dates: start: 20090330, end: 20090624
  2. CELECOXIB [Suspect]
     Dosage: 100 MG, 2X/DAY
     Dates: start: 20090330, end: 20090624
  3. LOVASTATIN [Concomitant]
     Indication: HYPERLIPIDAEMIA
     Dosage: UNK
     Route: 048
     Dates: start: 20080101
  4. GLIPIZIDE [Concomitant]
     Indication: TYPE 2 DIABETES MELLITUS
     Dosage: UNK
     Route: 048
     Dates: start: 20060101
  5. CELEBREX [Concomitant]
     Indication: OSTEOARTHRITIS
     Dosage: UNK
     Route: 048
     Dates: start: 20081201
  6. ATENOLOL [Concomitant]
     Indication: HYPERTENSION
     Dosage: UNK
     Route: 048
     Dates: start: 20060101
  7. LISINOPRIL [Concomitant]
     Indication: HYPERTENSION
     Dosage: UNK
     Route: 048
     Dates: start: 20060101
  8. BACTRIM DS [Concomitant]
     Indication: URINARY TRACT INFECTION
     Dosage: UNK
     Dates: start: 20090521, end: 20090525

REACTIONS (2)
  - APHASIA [None]
  - PARALYSIS [None]
